FAERS Safety Report 10388794 (Version 1)
Quarter: 2014Q1

REPORT INFORMATION
  Report Type: Spontaneous
  Country: US (occurrence: None)
  Receive Date: 20140306
  Receipt Date: 20140306
  Transmission Date: 20141002
  Serious: Yes (Hospitalization)
  Sender: FDA-Public Use
  Company Number: 163-21880-13064093

PATIENT
  Age: 70 Year
  Sex: Female
  Weight: 92.53 kg

DRUGS (11)
  1. REVLIMID (LENALIDOMIDE) (25 MILLIGRAM, CAPSULES) [Suspect]
     Indication: PLASMA CELL MYELOMA
     Route: 048
     Dates: start: 20100922
  2. ZOMETA (ZOLEDRONIC ACID) [Concomitant]
  3. METFORMIN HCL (METFORMIN HYDROCHLORIDE) [Concomitant]
  4. DEXAMETHASONE [Concomitant]
  5. BENICAR HCT [Concomitant]
  6. LASIX (FUROSEMIDE) [Concomitant]
  7. FISH OIL [Concomitant]
  8. VITAMIN B12 (CYANOCOBALAMIN) [Concomitant]
  9. MULTIVITAMINS [Concomitant]
  10. CALCIUM CITRATE [Concomitant]
  11. MAGNESIUM [Concomitant]

REACTIONS (3)
  - Cellulitis [None]
  - Bacterial infection [None]
  - Hypersensitivity [None]
